FAERS Safety Report 6812768-5 (Version None)
Quarter: 2010Q3

REPORT INFORMATION
  Report Type: 
  Country: None (occurrence: None)
  Receive Date: 20100701
  Receipt Date: 20100621
  Transmission Date: 20110219
  Serious: Yes (Hospitalization)
  Sender: FDA-Public Use
  Company Number: B0583538A

PATIENT
  Sex: Female
  Weight: 46 kg

DRUGS (8)
  1. VALTREX [Suspect]
     Indication: HERPES ZOSTER
     Dosage: 1000MG THREE TIMES PER DAY
     Route: 048
     Dates: start: 20090706, end: 20090707
  2. ACYCLOVIR [Suspect]
     Indication: HERPES ZOSTER
     Dosage: 250MG PER DAY
     Route: 042
     Dates: start: 20090706, end: 20090708
  3. LOXONIN [Concomitant]
     Indication: HERPES ZOSTER
     Dosage: 180MG PER DAY
     Route: 048
     Dates: start: 20090706, end: 20090707
  4. MUCOSTA [Concomitant]
     Indication: HERPES ZOSTER
     Dosage: 300MG PER DAY
     Route: 048
     Dates: start: 20090706, end: 20090707
  5. UNKNOWN DRUG [Concomitant]
     Indication: HERPES ZOSTER
     Dosage: 1.5MG PER DAY
     Route: 048
     Dates: start: 20090706, end: 20090707
  6. AMLODIN [Concomitant]
     Indication: HYPERTENSION
     Dosage: 5MG PER DAY
     Route: 048
     Dates: end: 20090707
  7. ENALAPRIL MALEATE [Concomitant]
     Indication: HYPERTENSION
     Dosage: 5MG PER DAY
     Route: 048
     Dates: end: 20090707
  8. SOLITA-T NO 3 [Concomitant]
     Indication: HERPES ZOSTER
     Dosage: 200ML PER DAY
     Dates: start: 20090706

REACTIONS (10)
  - DECREASED APPETITE [None]
  - DISORIENTATION [None]
  - DIZZINESS [None]
  - ENCEPHALOPATHY [None]
  - GAIT DISTURBANCE [None]
  - MALAISE [None]
  - NAUSEA [None]
  - NEPHRITIS [None]
  - RENAL FAILURE ACUTE [None]
  - VOMITING [None]
